FAERS Safety Report 25276823 (Version 1)
Quarter: 2025Q2

REPORT INFORMATION
  Report Type: Spontaneous
  Country: DE (occurrence: DE)
  Receive Date: 20250507
  Receipt Date: 20250507
  Transmission Date: 20250716
  Serious: Yes (Life-Threatening, Hospitalization)
  Sender: SANDOZ
  Company Number: None

PATIENT
  Age: 65 Year
  Sex: Female

DRUGS (2)
  1. ERELZI [Suspect]
     Active Substance: ETANERCEPT-SZZS
     Indication: Product used for unknown indication
     Route: 065
     Dates: start: 202302, end: 202409
  2. RINVOQ [Suspect]
     Active Substance: UPADACITINIB
     Indication: Rheumatoid arthritis
     Dosage: 15 MG, QD
     Route: 065
     Dates: start: 202203, end: 20220602

REACTIONS (2)
  - Transitional cell carcinoma recurrent [Recovered/Resolved]
  - Transitional cell cancer of the renal pelvis and ureter localised [Recovered/Resolved]

NARRATIVE: CASE EVENT DATE: 20240905
